FAERS Safety Report 11630523 (Version 1)
Quarter: 2015Q4

REPORT INFORMATION
  Report Type: Spontaneous
  Country: US (occurrence: US)
  Receive Date: 20151014
  Receipt Date: 20151014
  Transmission Date: 20160304
  Serious: No
  Sender: FDA-Public Use
  Company Number: US-UNICHEM LABORATORIES LIMITED-UCM201508-000561

PATIENT
  Age: 45 Year
  Sex: Female
  Weight: 72.58 kg

DRUGS (7)
  1. IBUPROFEN. [Concomitant]
     Active Substance: IBUPROFEN
  2. OMEPRAZOLE. [Concomitant]
     Active Substance: OMEPRAZOLE
  3. KLOR-CON M20 [Suspect]
     Active Substance: POTASSIUM CHLORIDE
  4. TYLENOL [Concomitant]
     Active Substance: ACETAMINOPHEN
  5. ZOLPIDEM [Concomitant]
     Active Substance: ZOLPIDEM\ZOLPIDEM TARTRATE
  6. HYDROCHLOROTHIAZIDE. [Suspect]
     Active Substance: HYDROCHLOROTHIAZIDE
     Indication: HYPERTENSION
     Route: 048
     Dates: start: 201503
  7. CYCLOBENZAPRINE [Concomitant]
     Active Substance: CYCLOBENZAPRINE

REACTIONS (10)
  - Fatigue [Unknown]
  - Memory impairment [Unknown]
  - Pain in extremity [Unknown]
  - Nasopharyngitis [Unknown]
  - Lipoma [Unknown]
  - Malaise [Recovering/Resolving]
  - Blood potassium decreased [Unknown]
  - Fall [Unknown]
  - Musculoskeletal pain [Unknown]
  - Blood urine present [Unknown]

NARRATIVE: CASE EVENT DATE: 201503
